FAERS Safety Report 8017715-9 (Version None)
Quarter: 2012Q1

REPORT INFORMATION
  Report Type: 
  Country: None (occurrence: None)
  Receive Date: 20120103
  Receipt Date: 20111227
  Transmission Date: 20120608
  Serious: No
  Sender: FDA-Public Use
  Company Number: US-PFIZER INC-2011314762

PATIENT
  Sex: Female

DRUGS (4)
  1. WELLBATRIN [Concomitant]
     Indication: DEPRESSION
  2. GEODON [Suspect]
     Indication: DEPRESSED MOOD
     Dosage: 20 MG, UNK
  3. PAXIL [Suspect]
     Dosage: UNK
  4. WELLBATRIN [Concomitant]
     Indication: DEPRESSED MOOD
     Dosage: 150 MG, UNK

REACTIONS (5)
  - DIZZINESS [None]
  - HEADACHE [None]
  - NAUSEA [None]
  - FATIGUE [None]
  - DRUG INEFFECTIVE [None]
